FAERS Safety Report 6273841-6 (Version None)
Quarter: 2009Q3

REPORT INFORMATION
  Report Type: 
  Country: None (occurrence: None)
  Receive Date: 20090715
  Receipt Date: 20090630
  Transmission Date: 20100115
  Serious: Yes (Congenital Anomaly, Other)
  Sender: FDA-Public Use
  Company Number: 09-000725

PATIENT
  Age: 60 Year
  Sex: Male

DRUGS (2)
  1. TACLONE   (CALCIPOTRIENE 0.005 %, BETAMETHASON DIPROPIONATE 0.064 %) O [Suspect]
     Indication: PSORIASIS
     Dosage: 2 APPLICATIONS DAILY, TOPICAL
     Route: 061
     Dates: start: 20090402, end: 20090428
  2. DOVONEX [Suspect]

REACTIONS (3)
  - DRUG INEFFECTIVE [None]
  - OVERDOSE [None]
  - REBOUND EFFECT [None]
